FAERS Safety Report 15417649 (Version 1)
Quarter: 2018Q3

REPORT INFORMATION
  Report Type: Spontaneous
  Country: AU (occurrence: AU)
  Receive Date: 20180924
  Receipt Date: 20180924
  Transmission Date: 20181010
  Serious: Yes (Other)
  Sender: FDA-Public Use
  Company Number: PHHY2018AU097323

PATIENT
  Age: 62 Year
  Sex: Female

DRUGS (1)
  1. PAZOPANIB [Suspect]
     Active Substance: PAZOPANIB
     Indication: SARCOMA METASTATIC
     Route: 065

REACTIONS (3)
  - Bronchopleural fistula [Recovering/Resolving]
  - Subcutaneous emphysema [Recovering/Resolving]
  - Pleurocutaneous fistula [Recovering/Resolving]
